FAERS Safety Report 6617458-X (Version None)
Quarter: 2010Q1

REPORT INFORMATION
  Report Type: 
  Country: None (occurrence: None)
  Receive Date: 20100308
  Receipt Date: 20100115
  Transmission Date: 20100710
  Serious: Yes (Hospitalization, Other)
  Sender: FDA-Public Use
  Company Number: US-JNJFOC-20081006415

PATIENT
  Sex: Female
  Weight: 74.84 kg

DRUGS (34)
  1. LEVAQUIN [Suspect]
     Indication: PNEUMONIA
     Route: 048
  2. LEVAQUIN [Suspect]
     Route: 048
  3. LEVAQUIN [Suspect]
     Route: 048
  4. LEVAQUIN [Suspect]
     Route: 048
  5. LEVAQUIN [Suspect]
     Route: 048
  6. LEVAQUIN [Suspect]
     Route: 048
  7. LEVAQUIN [Suspect]
     Route: 048
  8. LEVAQUIN [Suspect]
     Route: 048
  9. LEVAQUIN [Suspect]
     Route: 048
  10. LEVAQUIN [Suspect]
     Indication: BRONCHITIS
     Route: 048
  11. LEVAQUIN [Suspect]
     Route: 048
  12. LEVAQUIN [Suspect]
     Route: 048
  13. LEVAQUIN [Suspect]
     Route: 048
  14. LEVAQUIN [Suspect]
     Route: 048
  15. LEVAQUIN [Suspect]
     Route: 048
  16. LEVAQUIN [Suspect]
     Route: 048
  17. LEVAQUIN [Suspect]
     Route: 048
  18. LEVAQUIN [Suspect]
     Route: 048
  19. PRAVASTATIN [Concomitant]
     Indication: BLOOD CHOLESTEROL
     Route: 048
  20. PREVACID [Concomitant]
     Indication: ULCER
     Route: 048
  21. PHENERGAN HCL [Concomitant]
     Indication: NAUSEA
     Route: 048
  22. CLONAZPAM [Concomitant]
     Indication: ANXIETY
     Route: 048
  23. AMBIEN [Concomitant]
     Indication: SLEEP DISORDER
     Dosage: ONE PER NIGHT
     Route: 048
  24. HYDROCODONE [Concomitant]
     Indication: PAIN
     Route: 048
  25. DIAZAPAM [Concomitant]
     Indication: ANXIETY
     Dosage: AS NEEDED
     Route: 048
  26. LOVASTATIN [Concomitant]
     Route: 048
  27. NORCO [Concomitant]
     Dosage: 10-325 MG
     Route: 048
  28. MULTI-VITAMINS [Concomitant]
     Route: 048
  29. CALCIUM CARBONATE-VITAMIN D [Concomitant]
     Route: 048
  30. HIGH BLOOD PRESSURE MEDICATION [Concomitant]
     Route: 065
  31. LITHIUM CARBONATE [Concomitant]
     Route: 048
  32. ABILIFY [Concomitant]
     Route: 048
  33. DEPAKOTE [Concomitant]
     Route: 048
  34. ATACAND [Concomitant]
     Route: 048

REACTIONS (18)
  - ABNORMAL BEHAVIOUR [None]
  - ANXIETY [None]
  - ARTHRALGIA [None]
  - CHONDROPATHY [None]
  - CONFUSIONAL STATE [None]
  - CYST [None]
  - HALLUCINATION [None]
  - JOINT DISLOCATION [None]
  - JOINT SWELLING [None]
  - LIGAMENT INJURY [None]
  - MENISCUS LESION [None]
  - NAUSEA [None]
  - OSTEOARTHRITIS [None]
  - PSYCHOTIC DISORDER [None]
  - RESTLESSNESS [None]
  - SLEEP DISORDER [None]
  - TENDON RUPTURE [None]
  - THINKING ABNORMAL [None]
